FAERS Safety Report 6541381-2 (Version None)
Quarter: 2010Q1

REPORT INFORMATION
  Report Type: 
  Country: None (occurrence: None)
  Receive Date: 20100118
  Receipt Date: 20100112
  Transmission Date: 20100710
  Serious: Yes (Death)
  Sender: FDA-Public Use
  Company Number: PHEH2010US00534

PATIENT
  Sex: Female
  Weight: 70.295 kg

DRUGS (8)
  1. EXELON [Suspect]
     Indication: VASCULAR DEMENTIA
     Dosage: 6 MG, BID
     Route: 048
     Dates: start: 20080201
  2. MIRALAX [Concomitant]
     Dosage: 1/2 CAP DAILY
  3. OLANZAPINE [Concomitant]
     Dosage: 25 MG, QD EVERY EVENING
  4. MEMANTINE HCL [Concomitant]
     Dosage: 10 MG, BID
  5. LASIX [Concomitant]
     Dosage: 20 MG, BID
  6. K-DUR [Concomitant]
     Dosage: 20 MEQ, QD
  7. NIZORAL [Concomitant]
     Dosage: TWICE WEEKLY
  8. ASPIRIN [Concomitant]
     Dosage: 81 MG, QD

REACTIONS (2)
  - DISEASE PROGRESSION [None]
  - VASCULAR DEMENTIA [None]
